FAERS Safety Report 19516948 (Version 1)
Quarter: 2021Q3

REPORT INFORMATION
  Report Type: Spontaneous
  Country: US (occurrence: US)
  Receive Date: 20210711
  Receipt Date: 20210711
  Transmission Date: 20211014
  Serious: No
  Sender: FDA-Public Use
  Company Number: US-ASTRAZENECA-2021A564136

PATIENT
  Age: 68 Year
  Sex: Male
  Weight: 117.9 kg

DRUGS (1)
  1. CALQUENCE [Suspect]
     Active Substance: ACALABRUTINIB
     Indication: CHRONIC LYMPHOCYTIC LEUKAEMIA
     Route: 048
     Dates: start: 20210520

REACTIONS (1)
  - Palpitations [Unknown]

NARRATIVE: CASE EVENT DATE: 20210501
